FAERS Safety Report 11197467 (Version 1)
Quarter: 2015Q2

REPORT INFORMATION
  Report Type: Spontaneous
  Country: US (occurrence: US)
  Receive Date: 20150617
  Receipt Date: 20150617
  Transmission Date: 20150821
  Serious: Yes (Other)
  Sender: FDA-Public Use
  Company Number: US-PFIZER INC-2015196992

PATIENT
  Age: 67 Year
  Sex: Male
  Weight: 83 kg

DRUGS (4)
  1. LIPITOR [Suspect]
     Active Substance: ATORVASTATIN CALCIUM
     Dosage: 10 MG, UNK
  2. SOTALOL. [Suspect]
     Active Substance: SOTALOL
     Dosage: 80 MG, DAILY (HALF A TABLET IN THE MORNING AND HALF A TABLET IN THE NIGHT )
  3. DILTIAZEM HCL [Suspect]
     Active Substance: DILTIAZEM HYDROCHLORIDE
     Dosage: 120 MG, UNK
  4. LISINOPRIL. [Suspect]
     Active Substance: LISINOPRIL
     Indication: ANTICOAGULANT THERAPY
     Dosage: 20 MG, UNK

REACTIONS (8)
  - Musculoskeletal pain [Not Recovered/Not Resolved]
  - Heart rate abnormal [Unknown]
  - Feeling abnormal [Unknown]
  - Stress [Unknown]
  - Pain [Not Recovered/Not Resolved]
  - Asthenia [Unknown]
  - Coronary artery disease [Unknown]
  - Cardiac disorder [Not Recovered/Not Resolved]
